FAERS Safety Report 18848604 (Version 1)
Quarter: 2021Q1

REPORT INFORMATION
  Report Type: Report from Study
  Country: JP (occurrence: JP)
  Receive Date: 20210205
  Receipt Date: 20210205
  Transmission Date: 20210419
  Serious: Yes (Other)
  Sender: FDA-Public Use
  Company Number: JP-AUROBINDO-AUR-APL-2021-004873

PATIENT
  Sex: Male

DRUGS (5)
  1. MELPHALAN. [Suspect]
     Active Substance: MELPHALAN
     Indication: NEUROBLASTOMA
     Dosage: 180 MILLIGRAM/SQ. METER
     Route: 065
  2. ETOPOSIDE. [Suspect]
     Active Substance: ETOPOSIDE
     Indication: NEUROBLASTOMA
     Dosage: 800 MILLIGRAM/SQ. METER
     Route: 065
  3. CARBOPLATIN. [Suspect]
     Active Substance: CARBOPLATIN
     Indication: NEUROBLASTOMA
     Dosage: 1600 MILLIGRAM/SQ. METER
     Route: 065
  4. MELPHALAN. [Suspect]
     Active Substance: MELPHALAN
     Dosage: 150 MILLIGRAM/SQ. METER
     Route: 065
  5. BUSULFAN. [Suspect]
     Active Substance: BUSULFAN
     Indication: NEUROBLASTOMA
     Dosage: 1.2 MILLIGRAM/KILOGRAM, FOUR TIMES/DAY (16 TIMES EVERY 6 HOURS)
     Route: 042

REACTIONS (5)
  - Hypoacusis [Unknown]
  - Acute kidney injury [Recovering/Resolving]
  - Short stature [Unknown]
  - Product use in unapproved indication [Unknown]
  - Gastrointestinal injury [Recovered/Resolved]
